FAERS Safety Report 14778855 (Version 1)
Quarter: 2018Q2

REPORT INFORMATION
  Report Type: Report from Study
  Country: NL (occurrence: NL)
  Receive Date: 20180419
  Receipt Date: 20180419
  Transmission Date: 20180711
  Serious: Yes (Life-Threatening, Other)
  Sender: FDA-Public Use
  Company Number: NL-MPIJNJ-2007_00337

PATIENT
  Age: 51 Year
  Sex: Male

DRUGS (3)
  1. ADRIAMYCIN [Suspect]
     Active Substance: DOXORUBICIN HYDROCHLORIDE
     Indication: PLASMA CELL MYELOMA
     Dosage: UNK
     Route: 065
     Dates: start: 20070124
  2. DEXAMETHASONE. [Suspect]
     Active Substance: DEXAMETHASONE
     Indication: PLASMA CELL MYELOMA
     Dosage: UNK
     Route: 065
     Dates: start: 20070124
  3. VELCADE [Suspect]
     Active Substance: BORTEZOMIB
     Indication: PLASMA CELL MYELOMA
     Dosage: 2.50 MG, UNK
     Route: 065
     Dates: start: 20070124

REACTIONS (12)
  - Pseudomonal bacteraemia [Recovered/Resolved]
  - Dyspnoea [Unknown]
  - Escherichia bacteraemia [Recovered/Resolved]
  - Gastric haemorrhage [Recovered/Resolved]
  - Hemiparesis [Unknown]
  - Renal tubular necrosis [Recovered/Resolved]
  - Epilepsy [Recovered/Resolved]
  - Malaise [Unknown]
  - Cerebral infarction [Unknown]
  - Rhabdomyolysis [Recovered/Resolved]
  - Encephalitis [Unknown]
  - Pneumococcal sepsis [Recovered/Resolved]

NARRATIVE: CASE EVENT DATE: 20070202
